FAERS Safety Report 5893936-6 (Version None)
Quarter: 2008Q3

REPORT INFORMATION
  Report Type: 
  Country: None (occurrence: None)
  Receive Date: 20080923
  Receipt Date: 20080912
  Transmission Date: 20090109
  Serious: Yes (Other)
  Sender: FDA-Public Use
  Company Number: US-ELI_LILLY_AND_COMPANY-US200809002961

PATIENT
  Sex: Female

DRUGS (5)
  1. HUMULIN R [Suspect]
     Dosage: UNK, UNK
     Dates: start: 19980101
  2. HUMULIN R [Suspect]
  3. CELLCEPT [Concomitant]
     Dosage: 5 MG, UNK
  4. PROGRAF [Concomitant]
     Dosage: 1 MG, UNK
  5. HYDRALAZINE HCL [Concomitant]
     Indication: HYPERTENSION
     Dosage: 5 MG, 2/D

REACTIONS (10)
  - ANGER [None]
  - ASTHENIA [None]
  - BLOOD GLUCOSE INCREASED [None]
  - DIZZINESS [None]
  - EXPIRED DRUG ADMINISTERED [None]
  - FALL [None]
  - HYPERTENSION [None]
  - LIVER TRANSPLANT [None]
  - MIGRAINE [None]
  - TOOTH FRACTURE [None]
